FAERS Safety Report 5761551-0 (Version None)
Quarter: 2008Q2

REPORT INFORMATION
  Report Type: 
  Country: None (occurrence: None)
  Receive Date: 20080606
  Receipt Date: 20080529
  Transmission Date: 20081010
  Serious: Yes (Hospitalization, Other)
  Sender: FDA-Public Use
  Company Number: GR-ABBOTT-07P-066-0362931-00

PATIENT
  Age: 74 Year
  Sex: Female

DRUGS (6)
  1. HUMIRA [Suspect]
     Indication: RHEUMATOID ARTHRITIS
     Route: 058
     Dates: start: 20040101, end: 20050301
  2. METHOTREXATE [Concomitant]
     Indication: RHEUMATOID ARTHRITIS
     Route: 048
     Dates: start: 19920101, end: 20050320
  3. FOLIC ACID [Concomitant]
     Indication: UNEVALUABLE EVENT
     Route: 048
     Dates: start: 19920101, end: 20050301
  4. NIFEDIPINE [Concomitant]
     Indication: CORONARY ARTERY DISEASE
     Route: 048
  5. TENORETIC 100 [Concomitant]
     Indication: HYPERTENSION
     Route: 048
  6. ASPIRIN [Concomitant]
     Indication: CORONARY ARTERY DISEASE
     Route: 048

REACTIONS (11)
  - APICAL GRANULOMA [None]
  - ASCITES [None]
  - C-REACTIVE PROTEIN INCREASED [None]
  - DISSEMINATED TUBERCULOSIS [None]
  - DYSPHAGIA [None]
  - HAEMATOCRIT DECREASED [None]
  - HYPONATRAEMIA [None]
  - NODULE [None]
  - RENAL FAILURE ACUTE [None]
  - RESPIRATORY DISTRESS [None]
  - TONSILLITIS [None]
